APPROVED DRUG PRODUCT: MEDIHALER ERGOTAMINE
Active Ingredient: ERGOTAMINE TARTRATE
Strength: 0.36MG/INH
Dosage Form/Route: AEROSOL, METERED;INHALATION
Application: N012102 | Product #001
Applicant: 3M PHARMACEUTICALS INC
Approved: Approved Prior to Jan 1, 1982 | RLD: No | RS: No | Type: DISCN